FAERS Safety Report 6722659-6 (Version None)
Quarter: 2010Q2

REPORT INFORMATION
  Report Type: 
  Country: None (occurrence: None)
  Receive Date: 20100512
  Receipt Date: 20100422
  Transmission Date: 20101027
  Serious: Yes (Other)
  Sender: FDA-Public Use
  Company Number: PHHY2010JP29958

PATIENT
  Sex: Male

DRUGS (6)
  1. STARSIS [Suspect]
     Indication: TYPE 2 DIABETES MELLITUS
     Dosage: 90 MG, TID
     Route: 048
     Dates: start: 20100306, end: 20100315
  2. LIPIDIL [Concomitant]
     Indication: HYPERTRIGLYCERIDAEMIA
     Dosage: 200 MG
     Dates: start: 20091029
  3. AMLODIN [Concomitant]
     Indication: HYPERTENSION
     Dosage: 5 MG
  4. MICARDIS [Concomitant]
     Indication: HYPERTENSION
     Dosage: 80 MG
  5. TIGASON [Concomitant]
     Indication: PSORIASIS
     Dosage: 20 MG
  6. MYSLEE [Concomitant]
     Indication: INSOMNIA
     Dosage: 5 MG
     Dates: start: 20100304

REACTIONS (5)
  - ALANINE AMINOTRANSFERASE INCREASED [None]
  - ASPARTATE AMINOTRANSFERASE INCREASED [None]
  - BLOOD CREATINE PHOSPHOKINASE INCREASED [None]
  - BLOOD LACTATE DEHYDROGENASE INCREASED [None]
  - PSORIASIS [None]
